FAERS Safety Report 9801013 (Version 6)
Quarter: 2014Q2

REPORT INFORMATION
  Report Type: Spontaneous
  Country: US (occurrence: US)
  Receive Date: 20140107
  Receipt Date: 20140417
  Transmission Date: 20141212
  Serious: No
  Sender: FDA-Public Use
  Company Number: US-PFIZER INC-2014003596

PATIENT
  Age: 40 Year
  Sex: Female
  Weight: 104.31 kg

DRUGS (3)
  1. LYRICA [Suspect]
     Indication: FIBROMYALGIA
     Dosage: 150 MG, 3X/DAY
     Route: 048
     Dates: end: 201402
  2. LYRICA [Suspect]
     Indication: NEUROPATHY PERIPHERAL
  3. FENTANYL [Concomitant]
     Dosage: UNK

REACTIONS (8)
  - Influenza [Unknown]
  - Drug withdrawal syndrome [Unknown]
  - Nausea [Unknown]
  - Burning sensation [Unknown]
  - Paraesthesia [Unknown]
  - General physical health deterioration [Unknown]
  - Feeling abnormal [Unknown]
  - Pain [Unknown]
